FAERS Safety Report 8422811-8 (Version None)
Quarter: 2012Q2

REPORT INFORMATION
  Report Type: 
  Country: None (occurrence: None)
  Receive Date: 20120608
  Receipt Date: 20120605
  Transmission Date: 20120825
  Serious: Yes (Hospitalization, Disabling, Other)
  Sender: FDA-Public Use
  Company Number: US-MERCK-1004USA01262

PATIENT
  Age: 54 Year
  Sex: Female
  Weight: 76 kg

DRUGS (12)
  1. HYDROCHLOROTHIAZIDE [Concomitant]
     Indication: ESSENTIAL HYPERTENSION
     Route: 048
  2. ALENDRONATE SODIUM [Suspect]
     Route: 048
     Dates: start: 20091208, end: 20100301
  3. FOSAMAX [Suspect]
     Indication: OSTEOPENIA
     Route: 048
     Dates: start: 20020101, end: 20100318
  4. CALCIUM (UNSPECIFIED) AND VITAMIN D (UNSPECIFIED) [Concomitant]
     Route: 065
     Dates: start: 20050101
  5. LIPITOR [Concomitant]
     Indication: HYPERLIPIDAEMIA
     Route: 065
  6. ALENDRONATE SODIUM [Suspect]
     Indication: OSTEOPENIA
     Route: 048
     Dates: start: 20080501, end: 20091201
  7. ALENDRONATE SODIUM [Suspect]
     Indication: OSTEOPOROSIS
     Route: 048
     Dates: start: 20080501, end: 20091201
  8. METOPROLOL SUCCINATE [Concomitant]
     Indication: ESSENTIAL HYPERTENSION
     Route: 065
  9. VITAMINS (UNSPECIFIED) [Concomitant]
     Route: 065
     Dates: start: 20050101
  10. FOSAMAX [Suspect]
     Indication: OSTEOPOROSIS
     Route: 048
     Dates: start: 20020101, end: 20100318
  11. ASPIRIN [Concomitant]
     Route: 065
  12. ALENDRONATE SODIUM [Suspect]
     Route: 048
     Dates: start: 20091208, end: 20100301

REACTIONS (26)
  - DYSPNOEA [None]
  - GAIT DISTURBANCE [None]
  - JOINT DISLOCATION [None]
  - MENISCUS LESION [None]
  - FATIGUE [None]
  - PAIN OF SKIN [None]
  - VISUAL ACUITY REDUCED [None]
  - RIB FRACTURE [None]
  - PERONEAL NERVE PALSY [None]
  - BURSITIS [None]
  - FEMUR FRACTURE [None]
  - LUNG NEOPLASM [None]
  - SPINAL OSTEOARTHRITIS [None]
  - SCOLIOSIS [None]
  - ATROPHIC VULVOVAGINITIS [None]
  - LARYNGEAL OEDEMA [None]
  - FALL [None]
  - RHINITIS ALLERGIC [None]
  - RADIUS FRACTURE [None]
  - ARTHRALGIA [None]
  - VITAMIN D DECREASED [None]
  - JOINT EFFUSION [None]
  - TEMPOROMANDIBULAR JOINT SYNDROME [None]
  - ASTHENIA [None]
  - LOW TURNOVER OSTEOPATHY [None]
  - DYSPHONIA [None]
